FAERS Safety Report 7596974-0 (Version None)
Quarter: 2011Q3

REPORT INFORMATION
  Report Type: 
  Country: None (occurrence: None)
  Receive Date: 20110708
  Receipt Date: 20110629
  Transmission Date: 20111222
  Serious: Yes (Hospitalization)
  Sender: FDA-Public Use
  Company Number: US-ASTRAZENECA-2011SE38956

PATIENT
  Age: 515 Month
  Sex: Female
  Weight: 45.4 kg

DRUGS (1)
  1. VANDETANIB [Suspect]
     Indication: FALLOPIAN TUBE CANCER
     Dosage: DAILY
     Route: 048
     Dates: start: 20110308, end: 20110603

REACTIONS (2)
  - SINUS BRADYCARDIA [None]
  - ANGINA PECTORIS [None]
